FAERS Safety Report 7345350-4 (Version None)
Quarter: 2011Q1

REPORT INFORMATION
  Report Type: 
  Country: None (occurrence: None)
  Receive Date: 20110310
  Receipt Date: 20110308
  Transmission Date: 20110831
  Serious: Yes (Other)
  Sender: FDA-Public Use
  Company Number: US-PFIZER INC-2010162026

PATIENT
  Sex: Female
  Weight: 95.238 kg

DRUGS (4)
  1. CHANTIX [Suspect]
     Indication: SMOKING CESSATION THERAPY
     Dosage: 0.5 MG, UNK
     Route: 048
     Dates: start: 20090301
  2. CHANTIX [Suspect]
     Dosage: 0.5 MG, UNK
     Dates: start: 20101101
  3. CHANTIX [Suspect]
     Dosage: 1 MG, 2X/DAY
  4. DAPSONE [Suspect]
     Indication: GRANULOMA ANNULARE
     Dosage: 100 MG, 1X/DAY
     Route: 048
     Dates: start: 20101101, end: 20101129

REACTIONS (4)
  - SWOLLEN TONGUE [None]
  - DRUG HYPERSENSITIVITY [None]
  - PHARYNGEAL OEDEMA [None]
  - TONSILLAR HYPERTROPHY [None]
